FAERS Safety Report 23149906 (Version 1)
Quarter: 2023Q4

REPORT INFORMATION
  Report Type: Spontaneous
  Country: US (occurrence: US)
  Receive Date: 20231106
  Receipt Date: 20231106
  Transmission Date: 20240110
  Serious: No
  Sender: FDA-Public Use
  Company Number: US-JNJFOC-20231023856

PATIENT

DRUGS (6)
  1. ZYRTEC-D [Suspect]
     Active Substance: CETIRIZINE HYDROCHLORIDE\PSEUDOEPHEDRINE HYDROCHLORIDE
     Indication: Multiple allergies
     Dosage: ON THE FIRST DAY DID IT WORK OFF 1 TABLET. I HAVE TO USE 2 TABLETS NOW.
     Route: 065
  2. ZYRTEC-D [Suspect]
     Active Substance: CETIRIZINE HYDROCHLORIDE\PSEUDOEPHEDRINE HYDROCHLORIDE
     Indication: Epistaxis
     Dosage: ON THE FIRST DAY DID IT WORK OFF 1 TABLET. I HAVE TO USE 2 TABLETS NOW.
     Route: 065
  3. ZYRTEC-D [Suspect]
     Active Substance: CETIRIZINE HYDROCHLORIDE\PSEUDOEPHEDRINE HYDROCHLORIDE
     Indication: Nasal dryness
  4. ZYRTEC-D [Suspect]
     Active Substance: CETIRIZINE HYDROCHLORIDE\PSEUDOEPHEDRINE HYDROCHLORIDE
     Indication: Rhinorrhoea
  5. ALOE VERA LEAF [Concomitant]
     Active Substance: ALOE VERA LEAF
     Indication: Hypersensitivity
     Route: 065
  6. BENADRYL ORIGINAL STRENGTH ITCH STOPPING [Concomitant]
     Active Substance: DIPHENHYDRAMINE HYDROCHLORIDE\ZINC ACETATE
     Indication: Hypersensitivity
     Route: 065

REACTIONS (2)
  - Incorrect dose administered [Unknown]
  - Product use in unapproved indication [Unknown]
